FAERS Safety Report 16195448 (Version 3)
Quarter: 2019Q2

REPORT INFORMATION
  Report Type: Spontaneous
  Country: US (occurrence: US)
  Receive Date: 20190415
  Receipt Date: 20190618
  Transmission Date: 20190711
  Serious: No
  Sender: FDA-Public Use
  Company Number: US-GW PHARMA-201901USGW0046

PATIENT

DRUGS (1)
  1. EPIDIOLEX [Suspect]
     Active Substance: CANNABIDIOL
     Indication: EPILEPSY
     Dosage: 230 MILLIGRAM, BID
     Route: 048
     Dates: start: 20181218

REACTIONS (6)
  - Gingival swelling [Unknown]
  - Decreased appetite [Unknown]
  - Amenorrhoea [Unknown]
  - Irritability [Unknown]
  - Constipation [Unknown]
  - Weight decreased [Unknown]

NARRATIVE: CASE EVENT DATE: 201812
